FAERS Safety Report 5962102-8 (Version None)
Quarter: 2008Q4

REPORT INFORMATION
  Report Type: 
  Country: None (occurrence: None)
  Receive Date: 20081121
  Receipt Date: 20081112
  Transmission Date: 20090506
  Serious: Yes (Hospitalization, Other)
  Sender: FDA-Public Use
  Company Number: PHHY2008JP28198

PATIENT
  Age: 14 Year
  Sex: Male

DRUGS (1)
  1. GLEEVEC [Suspect]
     Indication: ACUTE LYMPHOCYTIC LEUKAEMIA
     Route: 048

REACTIONS (3)
  - CORD BLOOD TRANSPLANT THERAPY [None]
  - GRAFT VERSUS HOST DISEASE [None]
  - RENAL FAILURE CHRONIC [None]
